FAERS Safety Report 15460763 (Version 1)
Quarter: 2018Q4

REPORT INFORMATION
  Report Type: Spontaneous
  Country: US (occurrence: US)
  Receive Date: 20181003
  Receipt Date: 20181003
  Transmission Date: 20190204
  Serious: Yes (Hospitalization)
  Sender: FDA-Public Use
  Company Number: US-VERTEX PHARMACEUTICALS-2018-007042

PATIENT
  Age: 47 Year
  Sex: Male

DRUGS (6)
  1. MEPHYTON [Concomitant]
     Active Substance: PHYTONADIONE
  2. ESOMEPRAZOL                        /01479301/ [Concomitant]
     Active Substance: ESOMEPRAZOLE
  3. VENTOLIN [Concomitant]
     Active Substance: ALBUTEROL SULFATE
  4. SYMDEKO [Suspect]
     Active Substance: IVACAFTOR\TEZACAFTOR
     Indication: CYSTIC FIBROSIS
     Dosage: 100MG TEZACAFTOR/150MG IVACAFTOR AM; 150MG IVACAFTOR PM
     Route: 048
     Dates: start: 20180524
  5. PULMOZYME [Concomitant]
     Active Substance: DORNASE ALFA
  6. ADVAIR HFA [Concomitant]
     Active Substance: FLUTICASONE PROPIONATE\SALMETEROL XINAFOATE

REACTIONS (1)
  - Cystic fibrosis respiratory infection suppression [Recovered/Resolved]

NARRATIVE: CASE EVENT DATE: 20180907
